FAERS Safety Report 5405635-5 (Version None)
Quarter: 2007Q3

REPORT INFORMATION
  Report Type: 
  Country: None (occurrence: None)
  Receive Date: 20070806
  Receipt Date: 20070731
  Transmission Date: 20080115
  Serious: Yes (Hospitalization, Other)
  Sender: FDA-Public Use
  Company Number: PHNU2007DE01005

PATIENT
  Sex: Male

DRUGS (11)
  1. SANDIMMUNE [Suspect]
     Indication: RENAL TRANSPLANT
     Dosage: 100 MG, BID
  2. ULTRALAN [Suspect]
  3. BAYOTENSIN [Concomitant]
  4. CANDESARTAN CILEXETIL [Concomitant]
  5. CYNT [Concomitant]
  6. MADOPAR [Concomitant]
  7. SIFROL [Concomitant]
  8. NACOM - SLOW RELEASE [Concomitant]
  9. FUROSEMIDE [Concomitant]
  10. MAGNESIUM SULFATE [Concomitant]
  11. EUTHYROX [Concomitant]

REACTIONS (7)
  - BLOOD CREATININE INCREASED [None]
  - CATARACT [None]
  - CATARACT OPERATION [None]
  - KNEE ARTHROPLASTY [None]
  - METASTASES TO THYROID [None]
  - PARKINSON'S DISEASE [None]
  - THYROID OPERATION [None]
